FAERS Safety Report 16931586 (Version 2)
Quarter: 2019Q4

REPORT INFORMATION
  Report Type: Report from Study
  Country: JP (occurrence: JP)
  Receive Date: 20191017
  Receipt Date: 20191025
  Transmission Date: 20200122
  Serious: Yes (Hospitalization)
  Sender: FDA-Public Use
  Company Number: JP-CELGENEUS-JPN-20191004130

PATIENT
  Age: 75 Year
  Sex: Male
  Weight: 46.1 kg

DRUGS (17)
  1. GILTERITINIB [Suspect]
     Active Substance: GILTERITINIB
     Dosage: 120 MILLIGRAM
     Route: 048
     Dates: start: 20191015
  2. PREGABALIN. [Concomitant]
     Active Substance: PREGABALIN
     Indication: SPINAL LIGAMENT OSSIFICATION
     Route: 065
  3. TADALAFIL. [Concomitant]
     Active Substance: TADALAFIL
     Indication: BENIGN PROSTATIC HYPERPLASIA
     Dosage: 5 MILLIGRAM
     Route: 065
  4. AZACITIDINE. [Suspect]
     Active Substance: AZACITIDINE
     Indication: ACUTE MYELOID LEUKAEMIA
     Dosage: 75 MILLIGRAM/SQ. METER
     Route: 065
     Dates: start: 20190918, end: 20190924
  5. FLUCONAZOLE. [Concomitant]
     Active Substance: FLUCONAZOLE
     Indication: INFECTION PROPHYLAXIS
     Dosage: 100 MILLIGRAM
     Route: 065
     Dates: start: 20190911
  6. SODIUM GUALENATE [Concomitant]
     Active Substance: SODIUM GUALENATE
     Indication: LIP DRY
     Dosage: .033 PERCENT
     Route: 065
     Dates: start: 20190926
  7. MAGNESIUM OXIDE. [Concomitant]
     Active Substance: MAGNESIUM OXIDE
     Indication: CONSTIPATION
     Dosage: 330 MILLIGRAM
     Route: 065
  8. MIRABEGRON [Concomitant]
     Active Substance: MIRABEGRON
     Indication: BENIGN PROSTATIC HYPERPLASIA
     Dosage: 25 MILLIGRAM
     Route: 065
  9. THROMBOMODULIN ALFA [Concomitant]
     Active Substance: THROMBOMODULIN ALFA
     Indication: PRODUCT USED FOR UNKNOWN INDICATION
     Dosage: 5760 IU (INTERNATIONAL UNIT)
     Route: 065
     Dates: start: 20190930
  10. CEFEPIME HYDROCHLORIDE. [Concomitant]
     Active Substance: CEFEPIME HYDROCHLORIDE
     Indication: PRODUCT USED FOR UNKNOWN INDICATION
     Route: 065
     Dates: start: 20190910, end: 20191001
  11. VORICONAZOLE. [Concomitant]
     Active Substance: VORICONAZOLE
     Indication: PRODUCT USED FOR UNKNOWN INDICATION
     Route: 065
     Dates: start: 20190909
  12. LEVOFLOXACIN HEMIHYDRATE [Concomitant]
     Active Substance: LEVOFLOXACIN
     Indication: PRODUCT USED FOR UNKNOWN INDICATION
     Route: 065
     Dates: start: 20190909
  13. GILTERITINIB [Suspect]
     Active Substance: GILTERITINIB
     Indication: ACUTE MYELOID LEUKAEMIA
     Dosage: 120 MILLIGRAM
     Route: 048
     Dates: start: 20190918, end: 20191003
  14. NAFTOPIDIL [Concomitant]
     Active Substance: NAFTOPIDIL
     Indication: BENIGN PROSTATIC HYPERPLASIA
     Dosage: 25 MILLIGRAM
     Route: 065
  15. POTASSIUM CHLORIDE. [Concomitant]
     Active Substance: POTASSIUM CHLORIDE
     Indication: HYPOKALAEMIA
     Dosage: 600 MILLIGRAM
     Route: 065
     Dates: start: 20130913
  16. RABEPRAZOLE SODIUM. [Concomitant]
     Active Substance: RABEPRAZOLE SODIUM
     Indication: PROPHYLAXIS AGAINST GASTROINTESTINAL ULCER
     Dosage: 10 MILLIGRAM
     Route: 065
     Dates: start: 20190910
  17. LUBIPROSTONE [Concomitant]
     Active Substance: LUBIPROSTONE
     Indication: CONSTIPATION
     Dosage: 24 MICROGRAM
     Route: 065
     Dates: start: 20190929

REACTIONS (3)
  - Blood creatine phosphokinase increased [Recovering/Resolving]
  - Febrile neutropenia [Recovering/Resolving]
  - Disseminated intravascular coagulation [Not Recovered/Not Resolved]

NARRATIVE: CASE EVENT DATE: 20190919
